FAERS Safety Report 7494991-2 (Version None)
Quarter: 2011Q2

REPORT INFORMATION
  Report Type: 
  Country: None (occurrence: None)
  Receive Date: 20110520
  Receipt Date: 20101116
  Transmission Date: 20111010
  Serious: Yes (Hospitalization)
  Sender: FDA-Public Use
  Company Number: DE-ACTELION-A-US2010-48985

PATIENT

DRUGS (3)
  1. VENTAVIS [Suspect]
     Dosage: UNK
     Route: 055
     Dates: end: 20101111
  2. VENTAVIS [Suspect]
     Dosage: 2.5 ?G, Q4HR
     Route: 055
     Dates: start: 20101116
  3. VENTAVIS [Suspect]
     Indication: PULMONARY HYPERTENSION
     Dosage: 5 ?G, Q4HR
     Route: 055
     Dates: start: 20101103, end: 20101103

REACTIONS (5)
  - CARDIOVASCULAR DISORDER [None]
  - OEDEMA PERIPHERAL [None]
  - OEDEMA [None]
  - HEART RATE INCREASED [None]
  - HYPOTENSION [None]
